FAERS Safety Report 7569606-5 (Version None)
Quarter: 2011Q2

REPORT INFORMATION
  Report Type: 
  Country: None (occurrence: None)
  Receive Date: 20110617
  Receipt Date: 20110603
  Transmission Date: 20111010
  Serious: Yes (Other)
  Sender: FDA-Public Use
  Company Number: 942927

PATIENT
  Age: 7 Year
  Sex: Male

DRUGS (2)
  1. DOXORUBICIN HYDROCHLORIDE [Concomitant]
  2. METHOTREXATE [Suspect]
     Indication: BONE SARCOMA

REACTIONS (2)
  - BONE SARCOMA [None]
  - LUNG NEOPLASM [None]
